FAERS Safety Report 9788070 (Version 1)
Quarter: 2013Q4

REPORT INFORMATION
  Report Type: Spontaneous
  Country: CH (occurrence: CH)
  Receive Date: 20131230
  Receipt Date: 20131230
  Transmission Date: 20140711
  Serious: Yes (Hospitalization)
  Sender: FDA-Public Use
  Company Number: CH-SA-2013SA133521

PATIENT
  Age: 84 Year
  Sex: Female

DRUGS (18)
  1. LASIX [Suspect]
     Indication: ESSENTIAL HYPERTENSION
     Route: 048
     Dates: start: 201303, end: 201304
  2. TOREM [Suspect]
     Indication: ESSENTIAL HYPERTENSION
     Dosage: FREQUENCY 5 TIMES A DAY
     Route: 048
     Dates: start: 201304
  3. PERINDOPRIL [Suspect]
     Indication: ESSENTIAL HYPERTENSION
     Route: 048
     Dates: start: 201304
  4. SORTIS [Suspect]
     Indication: PROPHYLAXIS
     Route: 048
     Dates: start: 201303
  5. XARELTO [Suspect]
     Indication: ATRIAL FIBRILLATION
     Route: 048
  6. XARELTO [Suspect]
     Indication: ATRIAL FLUTTER
     Route: 048
  7. XARELTO [Suspect]
     Indication: ATRIAL FIBRILLATION
     Route: 048
     Dates: start: 201304
  8. XARELTO [Suspect]
     Indication: ATRIAL FLUTTER
     Route: 048
     Dates: start: 201304
  9. BILOL [Concomitant]
     Dates: start: 201304
  10. ZALDIAR [Concomitant]
     Dates: start: 201304, end: 201311
  11. POTASSIUM CHLORIDE [Concomitant]
     Dates: start: 201304
  12. MAGNESIUM [Concomitant]
     Dates: start: 201304
  13. PREDNISON [Concomitant]
  14. ALLOPUR [Concomitant]
  15. FENTANYL [Concomitant]
  16. PRAMIPEXOL [Concomitant]
  17. CALCIMAGON [Concomitant]
  18. MOVICOL [Concomitant]

REACTIONS (2)
  - Cerebral infarction [Unknown]
  - Thrombocytopenia [Unknown]
